FAERS Safety Report 25537527 (Version 2)
Quarter: 2025Q3

REPORT INFORMATION
  Report Type: Report from Study
  Country: US (occurrence: US)
  Receive Date: 20250710
  Receipt Date: 20250716
  Transmission Date: 20251020
  Serious: Yes (Other)
  Sender: ABBVIE
  Company Number: US-ABBVIE-6361219

PATIENT
  Age: 67 Year
  Sex: Male
  Weight: 86.182 kg

DRUGS (1)
  1. SKYRIZI [Suspect]
     Active Substance: RISANKIZUMAB-RZAA
     Indication: Psoriasis
     Dosage: UNKNOWN
     Route: 058
     Dates: start: 202501

REACTIONS (3)
  - Suicidal ideation [Recovered/Resolved]
  - Irritability [Recovered/Resolved]
  - Anger [Unknown]

NARRATIVE: CASE EVENT DATE: 20250101
